FAERS Safety Report 4854207-X (Version None)
Quarter: 2005Q4

REPORT INFORMATION
  Report Type: 
  Country: None (occurrence: None)
  Receive Date: 20051213
  Receipt Date: 20051130
  Transmission Date: 20060501
  Serious: Yes (Other)
  Sender: FDA-Public Use
  Company Number: 2005152647

PATIENT
  Sex: Female
  Weight: 47.6277 kg

DRUGS (5)
  1. NEURONTIN [Suspect]
     Indication: PAIN
     Dosage: 1200 MG (1 IN 1 D),
     Dates: start: 19950101, end: 20050101
  2. NORTRIPTYLINE HCL [Suspect]
     Indication: PAIN
     Dosage: 40 MG (40 MG, 1 IN 1 D),
  3. CLONAZEPAM [Suspect]
     Indication: PAIN
     Dosage: 1 MG (0.5 MG, 2 IN 1 D),
  4. ALL OTHER THERAPEUTIC PRODUCTS (ALL OTHER THERAPEUTIC PRODUCTS) [Concomitant]
  5. VITAMINS (VITAMINS) [Concomitant]

REACTIONS (5)
  - ALOPECIA [None]
  - BREAST CANCER RECURRENT [None]
  - DRUG INTERACTION [None]
  - FATIGUE [None]
  - STRESS [None]
